FAERS Safety Report 4340177-X (Version None)
Quarter: 2004Q1

REPORT INFORMATION
  Report Type: 
  Country: None (occurrence: None)
  Receive Date: 20040329
  Receipt Date: 20040202
  Transmission Date: 20041129
  Serious: No
  Sender: FDA-Public Use
  Company Number: 04P-163-0249078-00

PATIENT
  Age: 58 Year
  Sex: Male
  Weight: 64.8644 kg

DRUGS (5)
  1. HUMIRA [Suspect]
     Indication: RHEUMATOID ARTHRITIS
     Dosage: 40 MG , 1 IN 2 WK, SUBCUTANEOUS
     Route: 058
     Dates: start: 20031101, end: 20040131
  2. CELECOXIB [Concomitant]
  3. ESOMEPRAZOLE [Concomitant]
  4. IRON [Concomitant]
  5. FOLIC ACID [Concomitant]

REACTIONS (4)
  - ACQUIRED NIGHT BLINDNESS [None]
  - CONDITION AGGRAVATED [None]
  - MYOPIA [None]
  - VISION BLURRED [None]
